FAERS Safety Report 9520040 (Version 1)
Quarter: 2013Q1

REPORT INFORMATION
  Report Type: Spontaneous
  Country: US (occurrence: None)
  Receive Date: 20130305
  Receipt Date: 20130305
  Transmission Date: 20140127
  Serious: Yes (Other)
  Sender: FDA-Public Use
  Company Number: 163-21880-12012247

PATIENT
  Age: 67 Year
  Sex: Female
  Weight: 68.95 kg

DRUGS (25)
  1. REVLIMID (LENALIDOMIDE) (25 MILLIGRAM, CAPSULES) [Suspect]
     Indication: PLASMA CELL MYELOMA
     Dosage: DAILY X 21 DAYS
     Route: 048
     Dates: start: 20110418
  2. VITAMIN B6 (PYRIDOXINE HYDROCHLORIDE) [Suspect]
     Indication: PRODUCT USED FOR UNKNOWN INDICATION
  3. ACIDOPHILUS [Concomitant]
  4. CITRACAL + VITAMIN [Concomitant]
  5. DURAGESIC [Concomitant]
  6. DEXAMETHASONE [Concomitant]
  7. FLUTICASONE [Concomitant]
  8. IRON [Concomitant]
  9. LEVOTHYROXINE [Concomitant]
  10. MILK THISTLE [Concomitant]
  11. MULTIVITAMINS [Concomitant]
  12. OMEPRAZOLE [Concomitant]
  13. OXYCODONE [Concomitant]
  14. PAPAYA [Concomitant]
  15. PEPCID [Concomitant]
  16. PROAIR [Concomitant]
  17. SALMON OIL [Concomitant]
  18. SELENIUM [Concomitant]
  19. SPIRULINA [Concomitant]
  20. SUCRALFATE [Concomitant]
  21. TRAZODONE [Concomitant]
  22. VITAMIN B12 [Concomitant]
  23. VITAMIN D [Concomitant]
  24. VYTORIN [Concomitant]
  25. ZOLOFT [Concomitant]

REACTIONS (1)
  - Fungal infection [None]
